FAERS Safety Report 7037151-1 (Version None)
Quarter: 2010Q4

REPORT INFORMATION
  Report Type: 
  Country: None (occurrence: None)
  Receive Date: 20101011
  Receipt Date: 20100928
  Transmission Date: 20110411
  Serious: Yes (Hospitalization)
  Sender: FDA-Public Use
  Company Number: JP-NOVOPROD-315669

PATIENT
  Age: 57 Year
  Sex: Male
  Weight: 89 kg

DRUGS (5)
  1. VICTOZA [Suspect]
     Indication: TYPE 2 DIABETES MELLITUS
     Dosage: 0.9 MG, QD
     Route: 058
     Dates: start: 20100823, end: 20100917
  2. MELBIN                             /00082702/ [Suspect]
     Indication: TYPE 2 DIABETES MELLITUS
     Dosage: 1500 MG, QD
     Route: 048
  3. ALOSITOL [Concomitant]
     Indication: GOUT
     Dosage: 200 MG, QD
     Route: 048
  4. ADALAT CC [Concomitant]
     Indication: HYPERTENSION
     Dosage: /PO
     Route: 048
  5. LIPITOR [Concomitant]
     Indication: LIPIDS ABNORMAL
     Dosage: /PO
     Route: 048

REACTIONS (4)
  - DECREASED APPETITE [None]
  - DEHYDRATION [None]
  - RENAL IMPAIRMENT [None]
  - VOMITING [None]
